FAERS Safety Report 20879577 (Version 2)
Quarter: 2022Q2

REPORT INFORMATION
  Report Type: Spontaneous
  Country: CN (occurrence: CN)
  Receive Date: 20220526
  Receipt Date: 20220609
  Transmission Date: 20220720
  Serious: Yes (Other)
  Sender: FDA-Public Use
  Company Number: CN-PFIZER INC-202200757057

PATIENT
  Age: 52 Year
  Sex: Female
  Weight: 49.5 kg

DRUGS (3)
  1. VENLAFAXINE HCL [Suspect]
     Active Substance: VENLAFAXINE HYDROCHLORIDE
     Indication: Anxiety
     Dosage: 225 MG, 1X/DAY
     Route: 048
     Dates: start: 20220420, end: 20220509
  2. VENLAFAXINE HCL [Suspect]
     Active Substance: VENLAFAXINE HYDROCHLORIDE
     Indication: Depressed mood
  3. SULPIRIDE [Concomitant]
     Active Substance: SULPIRIDE
     Indication: Feeling abnormal
     Dosage: 0.2 G, 1X/DAY
     Route: 048
     Dates: start: 20220420, end: 20220512

REACTIONS (2)
  - Hyponatraemia [Recovered/Resolved]
  - Hypochloraemia [Recovered/Resolved]

NARRATIVE: CASE EVENT DATE: 20220504
